FAERS Safety Report 5357320-6 (Version None)
Quarter: 2007Q2

REPORT INFORMATION
  Report Type: 
  Country: None (occurrence: None)
  Receive Date: 20070612
  Receipt Date: 20070612
  Transmission Date: 20071010
  Serious: No
  Sender: FDA-Public Use
  Company Number: None

PATIENT
  Sex: Female
  Weight: 56.246 kg

DRUGS (1)
  1. PROAIR HFA [Suspect]
     Indication: EMPHYSEMA
     Dosage: 2 PUFFS 4X A DAY INHAL
     Route: 055
     Dates: start: 20070201, end: 20070601

REACTIONS (6)
  - BLOOD PRESSURE INCREASED [None]
  - DEVICE MALFUNCTION [None]
  - DRUG INEFFECTIVE [None]
  - HEART RATE INCREASED [None]
  - HEART RATE IRREGULAR [None]
  - PHARMACEUTICAL PRODUCT COMPLAINT [None]
